FAERS Safety Report 16983400 (Version 1)
Quarter: 2019Q4

REPORT INFORMATION
  Report Type: Spontaneous
  Country: US (occurrence: US)
  Receive Date: 20191030
  Receipt Date: 20191030
  Transmission Date: 20200122
  Serious: No
  Sender: FDA-Public Use
  Company Number: None

PATIENT
  Age: 84 Year
  Sex: Male
  Weight: 89.9 kg

DRUGS (1)
  1. RITUXAN [Suspect]
     Active Substance: RITUXIMAB
     Indication: MANTLE CELL LYMPHOMA
     Dosage: ?          OTHER FREQUENCY:EVERY 28 DAYS;?
     Route: 041
     Dates: start: 20190720

REACTIONS (8)
  - Nausea [None]
  - Blood pressure decreased [None]
  - Therapy cessation [None]
  - Erythema [None]
  - Chills [None]
  - Pruritus [None]
  - Vomiting [None]
  - Rash [None]

NARRATIVE: CASE EVENT DATE: 20190926
